FAERS Safety Report 24367187 (Version 1)
Quarter: 2024Q3

REPORT INFORMATION
  Report Type: Spontaneous
  Country: US (occurrence: None)
  Receive Date: 20240926
  Receipt Date: 20240926
  Transmission Date: 20241016
  Serious: Yes (Hospitalization, Other)
  Sender: ACS DOBFAR
  Company Number: US-ACS-20240366

PATIENT
  Age: 50 Year
  Sex: Female

DRUGS (2)
  1. CEFAZOLIN [Suspect]
     Active Substance: CEFAZOLIN
     Indication: Arthritis bacterial
     Dosage: CEFAZOLIN 2 G EVERY 8 H INFUSED OVER 30 MIN
  2. CEFAZOLIN [Suspect]
     Active Substance: CEFAZOLIN
     Indication: Arthritis bacterial

REACTIONS (1)
  - Haemolytic anaemia [Recovered/Resolved]
